FAERS Safety Report 19477184 (Version 1)
Quarter: 2021Q2

REPORT INFORMATION
  Report Type: Spontaneous
  Country: US (occurrence: US)
  Receive Date: 20210629
  Receipt Date: 20210629
  Transmission Date: 20210717
  Serious: Yes (Other)
  Sender: FDA-Public Use
  Company Number: None

PATIENT
  Age: 8 Year
  Sex: Male
  Weight: 33.6 kg

DRUGS (1)
  1. DEXTROAMPHETAMINE?AMPHETAMINE XR [Suspect]
     Active Substance: AMPHETAMINE ASPARTATE\DEXTROAMPHETAMINE SACCHARATE
     Indication: ATTENTION DEFICIT HYPERACTIVITY DISORDER
     Route: 048
     Dates: start: 20201124, end: 20210112

REACTIONS (2)
  - Dermatillomania [None]
  - Skin ulcer [None]

NARRATIVE: CASE EVENT DATE: 20210112
